FAERS Safety Report 7437452-9 (Version None)
Quarter: 2011Q2

REPORT INFORMATION
  Report Type: 
  Country: None (occurrence: None)
  Receive Date: 20110426
  Receipt Date: 20100722
  Transmission Date: 20111010
  Serious: Yes (Other)
  Sender: FDA-Public Use
  Company Number: US-PFIZER INC-2010092709

PATIENT
  Sex: Male
  Weight: 68 kg

DRUGS (1)
  1. ESTRING [Suspect]
     Indication: HORMONE REPLACEMENT THERAPY
     Dosage: UNK
     Route: 050
     Dates: start: 20100501

REACTIONS (5)
  - ACCIDENTAL EXPOSURE [None]
  - WHITE BLOOD CELL COUNT INCREASED [None]
  - CYSTITIS [None]
  - URINARY TRACT INFECTION [None]
  - DISCOMFORT [None]
